FAERS Safety Report 21068688 (Version 1)
Quarter: 2022Q3

REPORT INFORMATION
  Report Type: Spontaneous
  Country: US (occurrence: US)
  Receive Date: 20220712
  Receipt Date: 20220712
  Transmission Date: 20221026
  Serious: No
  Sender: FDA-Public Use
  Company Number: US-BRISTOL-MYERS SQUIBB COMPANY-2022-063481

PATIENT
  Age: 71 Year
  Sex: Male

DRUGS (1)
  1. POMALYST [Suspect]
     Active Substance: POMALIDOMIDE
     Indication: Plasma cell myeloma in remission
     Dosage: FREQ-TAKE 1 WHOLE CAPSULE BY MOUTH WITH WATER,W/ OR W/O FOOD AT THE SAME TIME EVERY DAY ON DAYS 1-21
     Route: 048

REACTIONS (1)
  - Product dose omission issue [Unknown]
